FAERS Safety Report 5772994-3 (Version None)
Quarter: 2008Q2

REPORT INFORMATION
  Report Type: 
  Country: None (occurrence: None)
  Receive Date: 20080611
  Receipt Date: 20080527
  Transmission Date: 20081010
  Serious: Yes (Hospitalization)
  Sender: FDA-Public Use
  Company Number: 2008001244

PATIENT
  Age: 53 Year
  Sex: Female
  Weight: 107 kg

DRUGS (14)
  1. ERLOTINIB (ERLOTINIB) (TABLET) (ELOTINIB) [Suspect]
     Indication: OVARIAN CANCER METASTATIC
     Dosage: 250 MG, DAYS 2-16/Q3W), ORAL
     Route: 048
     Dates: start: 20070915
  2. ALIMTA [Suspect]
     Dosage: 500 MG/M2, DAY 1 AND 8/Q3W), INTRAVENOUS
     Route: 042
     Dates: start: 20070914
  3. XANAX [Concomitant]
  4. PERCOCET (OXYCODET) [Concomitant]
  5. DECADRON [Concomitant]
  6. MODUCAL (MALTODEXTRIN) [Concomitant]
  7. LIPITOR [Concomitant]
  8. AMBIEN [Concomitant]
  9. HYDROCHLOROTHIAZIDE [Concomitant]
  10. NEXIUM [Concomitant]
  11. ATENOLOL [Concomitant]
  12. FOSINOPRIL SODIUM [Concomitant]
  13. COLACE (DOCUSATE SODIUM) [Concomitant]
  14. METRONIDAZOLE [Concomitant]

REACTIONS (30)
  - ANAEMIA [None]
  - ATELECTASIS [None]
  - BLOOD CHLORIDE DECREASED [None]
  - BLOOD CHLORIDE INCREASED [None]
  - BLOOD CULTURE POSITIVE [None]
  - CARDIOMEGALY [None]
  - CELLULITIS [None]
  - CONFUSIONAL STATE [None]
  - DIARRHOEA [None]
  - FEBRILE NEUTROPENIA [None]
  - INFECTION [None]
  - LABORATORY TEST INTERFERENCE [None]
  - LUNG CONSOLIDATION [None]
  - LYMPHADENOPATHY [None]
  - MENTAL STATUS CHANGES [None]
  - METASTASES TO HEART [None]
  - METASTASES TO PLEURA [None]
  - METASTASES TO SOFT TISSUE [None]
  - MUSCLE HAEMORRHAGE [None]
  - PLATELET COUNT DECREASED [None]
  - PLEURAL EFFUSION [None]
  - PULMONARY EMBOLISM [None]
  - PULMONARY OEDEMA [None]
  - PYELOCALIECTASIS [None]
  - RENAL DISORDER [None]
  - RENAL FAILURE ACUTE [None]
  - SKIN INFECTION [None]
  - STAPHYLOCOCCAL INFECTION [None]
  - TACHYCARDIA [None]
  - WHITE BLOOD CELL COUNT DECREASED [None]
